FAERS Safety Report 6371214-9 (Version None)
Quarter: 2009Q3

REPORT INFORMATION
  Report Type: 
  Country: None (occurrence: None)
  Receive Date: 20090923
  Receipt Date: 20070703
  Transmission Date: 20100115
  Serious: Yes (Other)
  Sender: FDA-Public Use
  Company Number: US-ASTRAZENECA-2007UW02174

PATIENT
  Age: 19 Year
  Sex: Female
  Weight: 140.6 kg

DRUGS (22)
  1. SEROQUEL [Suspect]
     Indication: BIPOLAR DISORDER
     Dosage: 200 MG, 300 MG FLUCTUATING
     Route: 048
     Dates: start: 20010407
  2. SEROQUEL [Suspect]
     Indication: SCHIZOPHRENIA
     Dosage: 200 MG, 300 MG FLUCTUATING
     Route: 048
     Dates: start: 20010407
  3. SEROQUEL [Suspect]
     Indication: DEPRESSION
     Dosage: 200 MG, 300 MG FLUCTUATING
     Route: 048
     Dates: start: 20010407
  4. SEROQUEL [Suspect]
     Dosage: 25-300 MG
     Route: 048
     Dates: start: 20010401
  5. SEROQUEL [Suspect]
     Dosage: 25-300 MG
     Route: 048
     Dates: start: 20010401
  6. SEROQUEL [Suspect]
     Dosage: 25-300 MG
     Route: 048
     Dates: start: 20010401
  7. ZYPREXA [Concomitant]
     Dates: start: 20010301
  8. TRILEPTAL [Concomitant]
     Dosage: 600 MG AT EVERY MORNING AND TWO AT NIGHT, 600 MG TWO BID
     Dates: start: 20010403
  9. PAXIL [Concomitant]
     Dates: start: 20060623
  10. PAXIL [Concomitant]
  11. WELLBUTRIN [Concomitant]
     Dates: start: 20020415
  12. WELLBUTRIN [Concomitant]
  13. DEPAKOTE [Concomitant]
     Indication: HEADACHE
     Dates: start: 20060612
  14. ZOLOFT [Concomitant]
     Dates: start: 20010403
  15. ZOLOFT [Concomitant]
  16. ADDERALL 10 [Concomitant]
     Dates: start: 20011211
  17. CLONIDINE [Concomitant]
     Indication: BLOOD PRESSURE
     Dates: start: 19920101
  18. LORATADINE [Concomitant]
     Dates: start: 20060530
  19. NEXIUM [Concomitant]
     Dates: start: 20060606
  20. METFORMIN HCL [Concomitant]
     Dates: start: 20060718
  21. LEVOTHYROXINE SODIUM [Concomitant]
     Dates: start: 20060718
  22. ZYRTEC [Concomitant]
     Dates: start: 20050110

REACTIONS (4)
  - GLUCOSE TOLERANCE IMPAIRED [None]
  - OBESITY [None]
  - SUICIDAL IDEATION [None]
  - TYPE 2 DIABETES MELLITUS [None]
